FAERS Safety Report 6192808-X (Version None)
Quarter: 2009Q2

REPORT INFORMATION
  Report Type: 
  Country: None (occurrence: None)
  Receive Date: 20090518
  Receipt Date: 20090507
  Transmission Date: 20091009
  Serious: Yes (Hospitalization)
  Sender: FDA-Public Use
  Company Number: JP-ASTRAZENECA-2009SE00752

PATIENT
  Sex: Male
  Weight: 65 kg

DRUGS (9)
  1. BLOPRESS TABLETS 4 [Suspect]
     Indication: HYPERTENSION
     Route: 048
     Dates: start: 20081215, end: 20090115
  2. LITHIUM CARBONATE [Suspect]
     Indication: BIPOLAR I DISORDER
     Route: 048
     Dates: start: 20081215, end: 20090115
  3. WARFARIN SODIUM [Suspect]
     Indication: MYOCARDIAL INFARCTION
     Route: 048
     Dates: start: 20081215, end: 20090115
  4. CARBAMAZEPINE [Concomitant]
     Indication: BIPOLAR I DISORDER
     Route: 048
     Dates: start: 20081215, end: 20090108
  5. CARBAMAZEPINE [Concomitant]
     Route: 048
     Dates: start: 20090109, end: 20090110
  6. WYPAX [Concomitant]
     Indication: BIPOLAR I DISORDER
     Route: 048
     Dates: start: 20081215, end: 20090114
  7. WYPAX [Concomitant]
     Route: 048
     Dates: start: 20090115, end: 20090117
  8. RISPERDAL OD [Concomitant]
     Indication: BIPOLAR I DISORDER
     Route: 048
     Dates: start: 20090110, end: 20090117
  9. CONTOMIN [Concomitant]
     Indication: BIPOLAR I DISORDER
     Route: 048
     Dates: end: 20090109

REACTIONS (1)
  - LIVER DISORDER [None]
